FAERS Safety Report 14266114 (Version 2)
Quarter: 2018Q3

REPORT INFORMATION
  Report Type: Spontaneous
  Country: GB (occurrence: GB)
  Receive Date: 20171209
  Receipt Date: 20180817
  Transmission Date: 20181010
  Serious: Yes (Other)
  Sender: FDA-Public Use
  Company Number: GB-CONCORDIA PHARMACEUTICALS INC.-E2B_00008695

PATIENT
  Age: 75 Year
  Sex: Male
  Weight: 81.5 kg

DRUGS (7)
  1. FOSTAIR [Concomitant]
     Active Substance: BECLOMETHASONE\FORMOTEROL
  2. PREDNISOLONE. [Suspect]
     Active Substance: PREDNISOLONE
     Indication: NEUROSARCOIDOSIS
     Route: 048
     Dates: start: 20131011, end: 20170923
  3. VENTOLIN [Concomitant]
     Active Substance: ALBUTEROL SULFATE
  4. CALCIUM AND VITAMIN D [Concomitant]
     Active Substance: CALCIUM\VITAMIN D
  5. AMIODARONE [Concomitant]
     Active Substance: AMIODARONE
     Indication: VENTRICULAR TACHYCARDIA
  6. AZATHIOPRINE. [Suspect]
     Active Substance: AZATHIOPRINE
     Indication: NEUROSARCOIDOSIS
     Route: 048
     Dates: start: 20131015, end: 20170923
  7. ALENDRONIC ACID [Concomitant]
     Active Substance: ALENDRONIC ACID

REACTIONS (4)
  - Pulmonary mass [Unknown]
  - Renal cell carcinoma [Not Recovered/Not Resolved]
  - Epstein-Barr virus infection [Unknown]
  - Lymphoproliferative disorder [Recovering/Resolving]
